FAERS Safety Report 23286386 (Version 1)
Quarter: 2023Q4

REPORT INFORMATION
  Report Type: Spontaneous
  Country: GR (occurrence: GR)
  Receive Date: 20231212
  Receipt Date: 20231212
  Transmission Date: 20240110
  Serious: Yes (Other)
  Sender: FDA-Public Use
  Company Number: GR-AMNEAL PHARMACEUTICALS-2023-AMRX-04285

PATIENT
  Age: 30 Year
  Sex: Male

DRUGS (2)
  1. DEXAMETHASONE SODIUM PHOSPHATE [Suspect]
     Active Substance: DEXAMETHASONE PHOSPHATE\DEXAMETHASONE SODIUM PHOSPHATE
     Indication: Systemic inflammatory response syndrome
     Dosage: 6 MILLIGRAM, DAILY FOR 1 WEEK
     Route: 042
  2. METHYLPREDNISOLONE [Suspect]
     Active Substance: METHYLPREDNISOLONE
     Indication: COVID-19
     Dosage: 16 MG WITH GRADUAL TAPERING (16 MG, ONCE DAILY FOR 3 DAYS, 8 MG ONCE DAILY FOR 3 DAYS, 4 MG ONCE DAI
     Route: 048

REACTIONS (1)
  - Central serous chorioretinopathy [Unknown]
